FAERS Safety Report 20108025 (Version 1)
Quarter: 2021Q4

REPORT INFORMATION
  Report Type: Spontaneous
  Country: US (occurrence: US)
  Receive Date: 20211124
  Receipt Date: 20211124
  Transmission Date: 20220303
  Serious: No
  Sender: FDA-Public Use
  Company Number: US-KERYX BIOPHARMACEUTICALS INC.-2020US007267

PATIENT
  Age: 70 Year
  Sex: Female
  Weight: 86.168 kg

DRUGS (2)
  1. AURYXIA [Suspect]
     Active Substance: TETRAFERRIC TRICITRATE DECAHYDRATE
     Indication: Hyperphosphataemia
     Dosage: 420 MILLIGRAM (2 TABLETS), TID
     Route: 048
     Dates: start: 20201105, end: 20201111
  2. AURYXIA [Suspect]
     Active Substance: TETRAFERRIC TRICITRATE DECAHYDRATE
     Dosage: 420 MILLIGRAM (2 TABLETS), TID
     Route: 048
     Dates: start: 20201114

REACTIONS (2)
  - Breath odour [Unknown]
  - Therapy interrupted [Recovered/Resolved]

NARRATIVE: CASE EVENT DATE: 20201108
